FAERS Safety Report 7552790-7 (Version None)
Quarter: 2011Q2

REPORT INFORMATION
  Report Type: 
  Country: None (occurrence: None)
  Receive Date: 20110616
  Receipt Date: 20110603
  Transmission Date: 20111010
  Serious: Yes (Other)
  Sender: FDA-Public Use
  Company Number: CA-JNJFOC-20110603299

PATIENT
  Sex: Male
  Weight: 88 kg

DRUGS (2)
  1. REMICADE [Suspect]
     Dosage: 5MG/KG
     Route: 042
     Dates: start: 20030409
  2. REMICADE [Suspect]
     Indication: CROHN'S DISEASE
     Dosage: MOST RECENT DOSE (5MG/KG)
     Route: 042
     Dates: start: 20110601

REACTIONS (1)
  - NEOPLASM PROSTATE [None]
